FAERS Safety Report 8584539-3 (Version None)
Quarter: 2012Q3

REPORT INFORMATION
  Report Type: 
  Country: None (occurrence: None)
  Receive Date: 20120730
  Receipt Date: 20120716
  Transmission Date: 20120928
  Serious: Yes (Other)
  Sender: FDA-Public Use
  Company Number: PT12-205-AE

PATIENT
  Age: 72 Year
  Sex: Female
  Weight: 62.1428 kg

DRUGS (1)
  1. FOLIC ACID [Suspect]
     Indication: RHEUMATOID ARTHRITIS
     Dosage: 1 TABLET, BID, ORAL
     Route: 048
     Dates: start: 20120714, end: 20120715

REACTIONS (5)
  - HEART RATE INCREASED [None]
  - TREMOR [None]
  - HEAD DISCOMFORT [None]
  - DIZZINESS [None]
  - PALPITATIONS [None]
